FAERS Safety Report 15262425 (Version 1)
Quarter: 2018Q3

REPORT INFORMATION
  Report Type: Report from Study
  Country: JP (occurrence: JP)
  Receive Date: 20180809
  Receipt Date: 20180809
  Transmission Date: 20181010
  Serious: No
  Sender: FDA-Public Use
  Company Number: JP-ALLERGAN-1839255US

PATIENT
  Age: 31 Year
  Sex: Female
  Weight: 58.6 kg

DRUGS (6)
  1. ASENAPINE MALEATE UNK [Suspect]
     Active Substance: ASENAPINE MALEATE
     Indication: SCHIZOPHRENIA
     Dosage: 5 MG, QPM
     Route: 060
     Dates: start: 20180312, end: 20180326
  2. LEVOMEPROMAZINE MALEATE [Concomitant]
     Active Substance: LEVOMEPROMAZINE MALEATE
     Indication: PRODUCT USED FOR UNKNOWN INDICATION
     Dosage: UNK
  3. ASENAPINE MALEATE UNK [Suspect]
     Active Substance: ASENAPINE MALEATE
     Dosage: 15 MG, QPM
     Route: 060
     Dates: start: 20180521, end: 20180603
  4. MIANSERIN HYDROCHLORIDE [Concomitant]
     Active Substance: MIANSERIN HYDROCHLORIDE
     Indication: PRODUCT USED FOR UNKNOWN INDICATION
     Dosage: UNK
  5. VALPROATE SODIUM. [Concomitant]
     Active Substance: VALPROATE SODIUM
     Indication: PRODUCT USED FOR UNKNOWN INDICATION
     Dosage: UNK
  6. ASENAPINE MALEATE UNK [Suspect]
     Active Substance: ASENAPINE MALEATE
     Dosage: 10 MG, QPM
     Route: 060
     Dates: start: 20180327, end: 20180520

REACTIONS (2)
  - Prescribed overdose [Unknown]
  - Tachycardia [Recovering/Resolving]

NARRATIVE: CASE EVENT DATE: 20180423
